FAERS Safety Report 9682530 (Version 2)
Quarter: 2013Q4

REPORT INFORMATION
  Report Type: Spontaneous
  Country: AR (occurrence: AR)
  Receive Date: 20131112
  Receipt Date: 20131112
  Transmission Date: 20140711
  Serious: Yes (Other)
  Sender: FDA-Public Use
  Company Number: AR-AMGEN-ARGSP2013076585

PATIENT
  Age: 53 Year
  Sex: Female

DRUGS (5)
  1. ENBREL [Suspect]
     Indication: RHEUMATOID ARTHRITIS
     Dosage: 50 MG, WEEKLY
     Route: 058
     Dates: start: 20010207, end: 201307
  2. ENBREL [Suspect]
     Dosage: 50 MG, WEEKLY
     Route: 058
     Dates: start: 201309, end: 2013
  3. LEVOTHYROXINE [Concomitant]
     Indication: HYPOTHYROIDISM
     Dosage: UNK
  4. PARACETAMOL [Concomitant]
     Indication: PAIN
     Dosage: UNK
  5. NAPROXEN [Concomitant]
     Indication: PAIN
     Dosage: UNK

REACTIONS (4)
  - Malaise [Recovered/Resolved]
  - Device dislocation [Recovered/Resolved]
  - Foot deformity [Recovered/Resolved]
  - Limb injury [Recovered/Resolved]
